FAERS Safety Report 11214510 (Version 1)
Quarter: 2015Q2

REPORT INFORMATION
  Report Type: Spontaneous
  Country: BR (occurrence: BR)
  Receive Date: 20150624
  Receipt Date: 20150624
  Transmission Date: 20150821
  Serious: Yes (Hospitalization, Other)
  Sender: FDA-Public Use
  Company Number: BR-PFIZER INC-2013289117

PATIENT
  Age: 67 Year
  Sex: Male

DRUGS (3)
  1. SUTENT [Suspect]
     Active Substance: SUNITINIB MALATE
     Indication: GASTROINTESTINAL STROMAL TUMOUR
     Dosage: 50 MG, CYCLIC (4 WEEKS ON AND 2 WEEKS OFF)
     Route: 048
     Dates: start: 20130715, end: 201307
  2. SUTENT [Suspect]
     Active Substance: SUNITINIB MALATE
     Dosage: 50 MG, CYCLE (2X1)
     Route: 048
     Dates: start: 20150309
  3. SUTENT [Suspect]
     Active Substance: SUNITINIB MALATE
     Dosage: CYCLIC (4 WEEKS ON AND 2 WEEKS OFF)
     Route: 048
     Dates: start: 201309

REACTIONS (16)
  - Tumour necrosis [Unknown]
  - Mouth ulceration [Not Recovered/Not Resolved]
  - Dysphagia [Not Recovered/Not Resolved]
  - Nasal inflammation [Not Recovered/Not Resolved]
  - Skin atrophy [Unknown]
  - Skin haemorrhage [Unknown]
  - Decreased appetite [Not Recovered/Not Resolved]
  - Haemorrhagic stroke [Unknown]
  - Gastrooesophageal reflux disease [Not Recovered/Not Resolved]
  - Aphthous stomatitis [Not Recovered/Not Resolved]
  - Eye inflammation [Not Recovered/Not Resolved]
  - Brain oedema [Unknown]
  - Hyperaesthesia [Unknown]
  - Lung infection [Unknown]
  - Diarrhoea [Not Recovered/Not Resolved]
  - Stomatitis [Not Recovered/Not Resolved]

NARRATIVE: CASE EVENT DATE: 2013
